FAERS Safety Report 10014403 (Version 2)
Quarter: 2014Q2

REPORT INFORMATION
  Report Type: Spontaneous
  Country: IT (occurrence: IT)
  Receive Date: 20140317
  Receipt Date: 20140514
  Transmission Date: 20141212
  Serious: Yes (Hospitalization)
  Sender: FDA-Public Use
  Company Number: IT-BRISTOL-MYERS SQUIBB COMPANY-20391777

PATIENT
  Age: 85 Year
  Sex: Male

DRUGS (6)
  1. COUMADIN TABS 5 MG [Suspect]
     Indication: ATRIAL FIBRILLATION
     Dosage: 1 DF : 1 UNITS NOS.?30JUN2012
     Route: 048
     Dates: start: 20120605, end: 20120630
  2. DIFLUCAN [Interacting]
     Dosage: 100MG/50ML INFUSION SOLUTION
     Route: 040
     Dates: start: 20120617, end: 20120630
  3. CEFTRIAXONE [Interacting]
     Dosage: 1 DF : 1 UNIT NOS.?1GR/10ML INJECTION SOLUTION
     Route: 040
     Dates: start: 20120617, end: 20120623
  4. NORVASC [Concomitant]
  5. CORDARONE [Concomitant]
  6. TRIATEC [Concomitant]

REACTIONS (2)
  - Hypocoagulable state [Recovered/Resolved]
  - Drug interaction [Unknown]
